FAERS Safety Report 13995317 (Version 1)
Quarter: 2017Q3

REPORT INFORMATION
  Report Type: Spontaneous
  Country: US (occurrence: US)
  Receive Date: 20170921
  Receipt Date: 20170921
  Transmission Date: 20171128
  Serious: Yes (Other)
  Sender: FDA-Public Use
  Company Number: None

PATIENT
  Sex: Female
  Weight: 40 kg

DRUGS (13)
  1. CALTRATE WITH VITAMIN D [Concomitant]
     Active Substance: CALCIUM CARBONATE\CHOLECALCIFEROL
  2. VITAMIN C [Concomitant]
     Active Substance: ASCORBIC ACID
  3. ANASTRAZOLE [Concomitant]
     Active Substance: ANASTROZOLE
  4. FERROUS SULFATE. [Concomitant]
     Active Substance: FERROUS SULFATE
  5. IBRANCE [Suspect]
     Active Substance: PALBOCICLIB
     Indication: BREAST CANCER
     Route: 048
     Dates: start: 20170830
  6. GARLIC. [Concomitant]
     Active Substance: GARLIC
  7. ARIMIDEX [Concomitant]
     Active Substance: ANASTROZOLE
  8. MULTIVITAMIN ADULT [Concomitant]
  9. ZOFRAN [Concomitant]
     Active Substance: ONDANSETRON HYDROCHLORIDE
  10. FASLODEX [Concomitant]
     Active Substance: FULVESTRANT
  11. ATENOLOL. [Concomitant]
     Active Substance: ATENOLOL
  12. DIOVAN [Concomitant]
     Active Substance: VALSARTAN
  13. FISH OIL [Concomitant]
     Active Substance: FISH OIL

REACTIONS (1)
  - Neutropenia [None]
